FAERS Safety Report 7532234-1 (Version None)
Quarter: 2011Q2

REPORT INFORMATION
  Report Type: 
  Country: None (occurrence: None)
  Receive Date: 20110608
  Receipt Date: 20110601
  Transmission Date: 20111010
  Serious: Yes (Hospitalization, Congenital Anomaly, Other)
  Sender: FDA-Public Use
  Company Number: GXKR2011DE01898

PATIENT
  Sex: Male
  Weight: 2.5 kg

DRUGS (3)
  1. FOLIC ACID [Concomitant]
     Dosage: MATERNAL DOSE: 0.4 MG/DAY
     Route: 064
  2. FLUOXETINE HCL [Suspect]
     Dosage: MATERNAL DOSE: 60 MG/DAY
     Route: 064
  3. DOXEPIN [Suspect]
     Dosage: MATERNAL DOSE: 125 MG/DAY
     Route: 064

REACTIONS (6)
  - EXTRAPYRAMIDAL DISORDER [None]
  - HAEMANGIOMA CONGENITAL [None]
  - FEELING JITTERY [None]
  - DRUG WITHDRAWAL SYNDROME NEONATAL [None]
  - PREMATURE BABY [None]
  - DRUG EXPOSURE DURING PREGNANCY [None]
